FAERS Safety Report 7061384-1 (Version None)
Quarter: 2010Q4

REPORT INFORMATION
  Report Type: 
  Country: None (occurrence: None)
  Receive Date: 20101026
  Receipt Date: 20101018
  Transmission Date: 20110411
  Serious: Yes (Hospitalization)
  Sender: FDA-Public Use
  Company Number: PHHY2010AT69632

PATIENT
  Age: 83 Year
  Sex: Male

DRUGS (2)
  1. RASILEZ HCT [Suspect]
     Indication: HYPERTENSION
     Dosage: UNK
     Route: 048
     Dates: start: 20100723
  2. AKTIFERRIN [Concomitant]
     Dosage: UNK

REACTIONS (2)
  - BLOOD CREATININE INCREASED [None]
  - HYPERTENSION [None]
